FAERS Safety Report 5139090-X (Version None)
Quarter: 2006Q4

REPORT INFORMATION
  Report Type: 
  Country: None (occurrence: None)
  Receive Date: 20061030
  Receipt Date: 20060619
  Transmission Date: 20070319
  Serious: No
  Sender: FDA-Public Use
  Company Number: US-GLAXOSMITHKLINE-A0609569A

PATIENT
  Age: 68 Year
  Sex: Male
  Weight: 90.9 kg

DRUGS (3)
  1. ADVAIR HFA [Suspect]
     Indication: PNEUMONIA
     Dosage: 1PUFF TWICE PER DAY
     Route: 055
  2. PREDNISONE TAB [Suspect]
     Indication: PNEUMONIA
  3. KEFLEX [Concomitant]
     Dosage: 500MG THREE TIMES PER DAY

REACTIONS (2)
  - FEELING JITTERY [None]
  - TREMOR [None]
